FAERS Safety Report 5355791-2 (Version None)
Quarter: 2007Q2

REPORT INFORMATION
  Report Type: 
  Country: None (occurrence: None)
  Receive Date: 20070611
  Receipt Date: 20070611
  Transmission Date: 20071010
  Serious: Yes (Other)
  Sender: FDA-Public Use
  Company Number: None

PATIENT
  Age: 58 Year
  Sex: Male
  Weight: 98.8842 kg

DRUGS (1)
  1. AMBIEN [Suspect]
     Indication: MIDDLE INSOMNIA
     Dosage: 5 MG
     Dates: start: 20070101, end: 20070531

REACTIONS (2)
  - HEART RATE IRREGULAR [None]
  - PALPITATIONS [None]
